FAERS Safety Report 9240306 (Version 1)
Quarter: 2013Q2

REPORT INFORMATION
  Report Type: Report from Study
  Country: US (occurrence: US)
  Receive Date: 20130418
  Receipt Date: 20130418
  Transmission Date: 20140414
  Serious: Yes (Other)
  Sender: FDA-Public Use
  Company Number: US-B.I. PHARMACEUTICALS,INC./RIDGEFIELD-2013-BI-10437GD

PATIENT
  Sex: 0

DRUGS (3)
  1. PRADAXA [Suspect]
     Indication: ATRIAL FIBRILLATION
     Dosage: 150 MG
  2. UNFRACTIONATED HEPARIN [Suspect]
     Indication: ANTICOAGULANT THERAPY
     Dosage: BOLUS (80-150 UNITS/KG) BEFORE TRANSSEPTAL PUNCTURE
  3. UNFRACTIONATED HEPARIN [Suspect]
     Dosage: CONTINUOUS INFUSION AND ADDITIONAL BOLUSES AS NEEDED TO TARGET AN ACT OF 350-450 SECONDS DURING THE
     Route: 042

REACTIONS (1)
  - Cardiac tamponade [Unknown]
